FAERS Safety Report 5939665-1 (Version None)
Quarter: 2008Q4

REPORT INFORMATION
  Report Type: 
  Country: None (occurrence: None)
  Receive Date: 20081030
  Receipt Date: 20081030
  Transmission Date: 20090506
  Serious: Yes (Hospitalization)
  Sender: FDA-Public Use
  Company Number: None

PATIENT
  Age: 68 Year
  Sex: Female
  Weight: 156 kg

DRUGS (3)
  1. VANCOMYCIN [Suspect]
     Indication: LOCALISED INFECTION
     Dosage: 1.5G QD X 2D IV
     Route: 042
     Dates: start: 20080805, end: 20080807
  2. VANCOMYCIN [Suspect]
     Indication: STAPHYLOCOCCAL INFECTION
     Dosage: 1.5G QD X 2D IV
     Route: 042
     Dates: start: 20080805, end: 20080807
  3. FUROSEMIDE [Concomitant]

REACTIONS (2)
  - DRUG LEVEL ABOVE THERAPEUTIC [None]
  - RENAL FAILURE [None]
